FAERS Safety Report 20684819 (Version 1)
Quarter: 2022Q2

REPORT INFORMATION
  Report Type: Spontaneous
  Country: US (occurrence: None)
  Receive Date: 20220406
  Receipt Date: 20220406
  Transmission Date: 20220721
  Serious: Yes (Disabling, Other)
  Sender: FDA-Public Use
  Company Number: None

PATIENT
  Age: 4 Year
  Sex: Female

DRUGS (1)
  1. MONTELUKAST SODIUM [Suspect]
     Active Substance: MONTELUKAST SODIUM
     Indication: Hypersensitivity
     Dosage: OTHER QUANTITY : 1 TABLET(S);?FREQUENCY : AT BEDTIME;?
     Route: 048
     Dates: start: 20170601, end: 20210824

REACTIONS (12)
  - Neuropsychiatric symptoms [None]
  - Condition aggravated [None]
  - Insomnia [None]
  - Anger [None]
  - Agitation [None]
  - Irritability [None]
  - Aggression [None]
  - Anxiety [None]
  - Obsessive-compulsive disorder [None]
  - Depression [None]
  - Feelings of worthlessness [None]
  - Suicidal ideation [None]

NARRATIVE: CASE EVENT DATE: 20170601
